FAERS Safety Report 17478447 (Version 1)
Quarter: 2020Q1

REPORT INFORMATION
  Report Type: Report from Study
  Country: DE (occurrence: DE)
  Receive Date: 20200229
  Receipt Date: 20200229
  Transmission Date: 20200409
  Serious: Yes (Life-Threatening, Hospitalization)
  Sender: FDA-Public Use
  Company Number: DE-AMGEN-DEUCT2020033704

PATIENT
  Age: 11 Year
  Sex: Female

DRUGS (11)
  1. PROPOFOL. [Concomitant]
     Active Substance: PROPOFOL
     Dosage: UNK
  2. PROPOFOL. [Concomitant]
     Active Substance: PROPOFOL
     Dosage: 1 MILLIGRAM/KILOGRAM, 4 TIMES WITHIN 20 MIN
     Dates: start: 20200219
  3. DEXAMETHASONE. [Concomitant]
     Active Substance: DEXAMETHASONE
     Indication: NEUROTOXICITY
     Dosage: 5.7 UNK
     Dates: start: 20200218
  4. BLINATUMOMAB [Suspect]
     Active Substance: BLINATUMOMAB
     Indication: ACUTE LYMPHOCYTIC LEUKAEMIA
     Dosage: 1 MICROGRAM, QD (15 MCG/M2/D)
     Route: 042
     Dates: start: 20200218, end: 20200219
  5. VORICONAZOL [Concomitant]
     Active Substance: VORICONAZOLE
     Dosage: 250 MILLIGRAM, BID
  6. DEXAMETHASONE. [Concomitant]
     Active Substance: DEXAMETHASONE
     Dosage: 6 MILLIGRAM (0.2 MG/KG) ONCE
     Dates: start: 20200219
  7. COTRIMOXAZOL [Concomitant]
     Active Substance: SULFAMETHOXAZOLE\TRIMETHOPRIM
     Dosage: 400/80MG, BID
  8. PARACETAMOL [Concomitant]
     Active Substance: ACETAMINOPHEN
     Dosage: 16 MILLIGRAM/KILOGRAM
     Dates: start: 20200219
  9. PROPOFOL. [Concomitant]
     Active Substance: PROPOFOL
     Dosage: 2 MILLIGRAM/KILOGRAM, QH
     Dates: start: 20200219, end: 20200220
  10. PARACETAMOL [Concomitant]
     Active Substance: ACETAMINOPHEN
     Dosage: 15 MILLIGRAM/SQM, Q6H
     Dates: start: 202002
  11. VALACICLOVIR [Concomitant]
     Active Substance: VALACYCLOVIR HYDROCHLORIDE
     Dosage: 500 MILLIGRAM, BID

REACTIONS (8)
  - Tonic convulsion [Recovered/Resolved]
  - Pyrexia [Recovered/Resolved]
  - Cardiogenic shock [Not Recovered/Not Resolved]
  - Pulmonary hypertension [Not Recovered/Not Resolved]
  - Right ventricular failure [Not Recovered/Not Resolved]
  - Respiratory distress [Not Recovered/Not Resolved]
  - Neurotoxicity [Not Recovered/Not Resolved]
  - Coagulopathy [Not Recovered/Not Resolved]

NARRATIVE: CASE EVENT DATE: 20200218
